FAERS Safety Report 9414758 (Version 2)
Quarter: 2013Q3

REPORT INFORMATION
  Report Type: Spontaneous
  Country: ES (occurrence: ES)
  Receive Date: 20130723
  Receipt Date: 20130802
  Transmission Date: 20140515
  Serious: Yes (Other)
  Sender: FDA-Public Use
  Company Number: ES-PFIZER INC-2013209514

PATIENT
  Age: 40 Year
  Sex: Female

DRUGS (3)
  1. DALACIN [Suspect]
     Indication: TUBO-OVARIAN ABSCESS
     Dosage: UNK
     Route: 042
     Dates: start: 20130708, end: 201307
  2. DALACIN [Suspect]
     Indication: TUBO-OVARIAN ABSCESS
     Dosage: 450 MG, 4X/DAY
     Route: 048
     Dates: start: 20130712
  3. DOXYCYCLINE HYCLATE [Suspect]
     Indication: TUBO-OVARIAN ABSCESS
     Dosage: UNK
     Dates: start: 2013, end: 2013

REACTIONS (3)
  - Vaginal haemorrhage [Recovered/Resolved]
  - Pruritus [Recovered/Resolved]
  - Diarrhoea [Recovered/Resolved]
